FAERS Safety Report 24884309 (Version 1)
Quarter: 2025Q1

REPORT INFORMATION
  Report Type: Spontaneous
  Country: JP (occurrence: JP)
  Receive Date: 20250124
  Receipt Date: 20250124
  Transmission Date: 20250409
  Serious: Yes (Hospitalization, Other)
  Sender: ASTELLAS
  Company Number: JP-ASTELLAS-2024-AER-016058

PATIENT
  Age: 6 Decade
  Sex: Male
  Weight: 63 kg

DRUGS (13)
  1. PADCEV [Suspect]
     Active Substance: ENFORTUMAB VEDOTIN-EJFV
     Indication: Bladder cancer
     Dosage: 87MG ONCE
     Route: 065
     Dates: start: 20240827, end: 20240911
  2. KEYTRUDA [Suspect]
     Active Substance: PEMBROLIZUMAB
     Indication: Bladder cancer
     Dosage: 200MG ONCE
     Route: 065
     Dates: start: 20240311, end: 20240722
  3. PREDONINE [Suspect]
     Active Substance: PREDNISOLONE
     Indication: Myasthenia gravis
     Route: 048
  4. SULFAMETHOXAZOLE\TRIMETHOPRIM [Concomitant]
     Active Substance: SULFAMETHOXAZOLE\TRIMETHOPRIM
     Indication: Product used for unknown indication
     Route: 065
  5. SULFAMETHOXAZOLE\TRIMETHOPRIM [Concomitant]
     Active Substance: SULFAMETHOXAZOLE\TRIMETHOPRIM
     Indication: Product used for unknown indication
     Route: 065
  6. MESTINON [Concomitant]
     Active Substance: PYRIDOSTIGMINE BROMIDE
     Indication: Product used for unknown indication
     Route: 065
  7. Nicorandil tablet 5mg [Concomitant]
     Indication: Product used for unknown indication
     Route: 065
  8. Benidipine hydrochloride tablet 4mg [Concomitant]
     Indication: Product used for unknown indication
     Route: 065
  9. REBAMIPIDE [Concomitant]
     Active Substance: REBAMIPIDE
     Indication: Product used for unknown indication
     Route: 065
  10. Takecab tablet 10mg [Concomitant]
     Indication: Product used for unknown indication
     Route: 065
  11. Polyful Fine granule 83.3? [Concomitant]
     Indication: Product used for unknown indication
     Route: 065
  12. Actonel tablet 75mg [Concomitant]
     Indication: Product used for unknown indication
     Route: 065
  13. INSULIN Subcutaneous injection [Concomitant]
     Indication: Hyperglycaemia
     Route: 058
     Dates: start: 20240924

REACTIONS (5)
  - Decreased appetite [Recovering/Resolving]
  - Pyrexia [Recovering/Resolving]
  - Hyperglycaemia [Recovering/Resolving]
  - Pancreatitis [Recovering/Resolving]
  - Nausea [Unknown]

NARRATIVE: CASE EVENT DATE: 20240911
